FAERS Safety Report 26035852 (Version 1)
Quarter: 2025Q4

REPORT INFORMATION
  Report Type: Spontaneous
  Country: EU (occurrence: EU)
  Receive Date: 20251112
  Receipt Date: 20251112
  Transmission Date: 20260118
  Serious: Yes (Other)
  Sender: ACCORD
  Company Number: None

PATIENT
  Age: 67 Year
  Sex: Female

DRUGS (1)
  1. ZOLEDRONIC ACID [Suspect]
     Active Substance: ZOLEDRONIC ACID
     Indication: Product used for unknown indication
     Dates: start: 20250911

REACTIONS (4)
  - Joint swelling [Unknown]
  - Pain [Unknown]
  - Pyrexia [Unknown]
  - Walking aid user [Unknown]

NARRATIVE: CASE EVENT DATE: 20250911
